FAERS Safety Report 14040567 (Version 2)
Quarter: 2017Q4

REPORT INFORMATION
  Report Type: Spontaneous
  Country: BR (occurrence: BR)
  Receive Date: 20171004
  Receipt Date: 20171016
  Transmission Date: 20180321
  Serious: Yes (Hospitalization, Other)
  Sender: FDA-Public Use
  Company Number: BR-ELI_LILLY_AND_COMPANY-BR201710000219

PATIENT
  Sex: Female

DRUGS (1)
  1. HUMALOG MIX75/25 [Suspect]
     Active Substance: INSULIN LISPRO
     Indication: DIABETES MELLITUS
     Dosage: UNK, UNKNOWN
     Route: 065
     Dates: start: 2014, end: 201707

REACTIONS (6)
  - Seizure [Unknown]
  - Nosocomial infection [Unknown]
  - Urinary tract infection [Not Recovered/Not Resolved]
  - Vomiting [Unknown]
  - Aspiration [Unknown]
  - Pneumonia [Unknown]
